FAERS Safety Report 5495856-8 (Version None)
Quarter: 2007Q4

REPORT INFORMATION
  Report Type: 
  Country: None (occurrence: None)
  Receive Date: 20071025
  Receipt Date: 20061205
  Transmission Date: 20080405
  Serious: No
  Sender: FDA-Public Use
  Company Number: A0626050A

PATIENT
  Age: 75 Year
  Sex: Male

DRUGS (11)
  1. ADVAIR DISKUS 100/50 [Suspect]
     Route: 055
     Dates: start: 20061030
  2. NEXIUM [Concomitant]
  3. ZETIA [Concomitant]
  4. ASPIRIN [Concomitant]
     Route: 048
  5. NORVASC [Concomitant]
  6. METANX [Concomitant]
  7. DETROL [Concomitant]
  8. TENORMIN [Concomitant]
  9. FLOMAX [Concomitant]
  10. PROSCAR [Concomitant]
  11. FISH OIL [Concomitant]

REACTIONS (1)
  - DYSPHONIA [None]
